FAERS Safety Report 11423403 (Version 3)
Quarter: 2015Q4

REPORT INFORMATION
  Report Type: Report from Study
  Country: US (occurrence: US)
  Receive Date: 20150827
  Receipt Date: 20151006
  Transmission Date: 20160304
  Serious: Yes (Hospitalization)
  Sender: FDA-Public Use
  Company Number: US-JNJFOC-20150814998

PATIENT
  Age: 60 Year
  Sex: Male
  Weight: 88.45 kg

DRUGS (2)
  1. STELARA [Suspect]
     Active Substance: USTEKINUMAB
     Indication: PSORIASIS
     Route: 058
     Dates: start: 201206, end: 201312
  2. STELARA [Suspect]
     Active Substance: USTEKINUMAB
     Indication: PSORIASIS
     Route: 058
     Dates: start: 201412

REACTIONS (1)
  - Pancreatic carcinoma [Recovered/Resolved]

NARRATIVE: CASE EVENT DATE: 20150810
